FAERS Safety Report 14667168 (Version 1)
Quarter: 2018Q1

REPORT INFORMATION
  Report Type: Spontaneous
  Country: FR (occurrence: FR)
  Receive Date: 20180322
  Receipt Date: 20180322
  Transmission Date: 20180509
  Serious: Yes (Other)
  Sender: FDA-Public Use
  Company Number: FR-MERCK KGAA-2044281

PATIENT
  Age: 40 Year
  Sex: Female

DRUGS (2)
  1. LEVOTHYROX 150 NF [Suspect]
     Active Substance: LEVOTHYROXINE SODIUM
     Dates: start: 2017, end: 2017
  2. NOVOTHYROX [Suspect]
     Active Substance: LEVOTHYROXINE SODIUM
     Indication: POST PROCEDURAL HYPOTHYROIDISM
     Dates: start: 201705, end: 2017

REACTIONS (22)
  - Arthralgia [None]
  - Feeling cold [None]
  - Loss of libido [None]
  - Headache [None]
  - Increased appetite [None]
  - Fatigue [None]
  - Impaired work ability [None]
  - Hot flush [None]
  - Blood thyroid stimulating hormone increased [None]
  - Gait disturbance [None]
  - Loss of personal independence in daily activities [None]
  - Social avoidant behaviour [None]
  - Decreased activity [None]
  - Hyperthyroidism [None]
  - Dizziness [None]
  - Palpitations [None]
  - Mood swings [None]
  - Insomnia [None]
  - Constipation [None]
  - Weight increased [None]
  - Condition aggravated [None]
  - Nervousness [None]

NARRATIVE: CASE EVENT DATE: 201705
